FAERS Safety Report 6507255-8 (Version None)
Quarter: 2009Q4

REPORT INFORMATION
  Report Type: 
  Country: None (occurrence: None)
  Receive Date: 20091221
  Receipt Date: 20091216
  Transmission Date: 20100525
  Serious: Yes (Hospitalization)
  Sender: FDA-Public Use
  Company Number: PHHO2005US05301

PATIENT
  Sex: Female
  Weight: 81.2 kg

DRUGS (4)
  1. NETAGLINIDE [Suspect]
     Dosage: LEVEL 1
     Route: 048
     Dates: start: 20030318
  2. VALSARTAN [Suspect]
     Dosage: LEVEL 2
     Route: 048
  3. PLACEBO PLACEBO [Suspect]
     Indication: CARDIOVASCULAR DISORDER
     Dosage: LEVEL 1
     Route: 048
     Dates: start: 20030318
  4. PLACEBO PLACEBO [Suspect]
     Dosage: LEVEL 2
     Route: 048

REACTIONS (9)
  - ASTHENIA [None]
  - CHILLS [None]
  - DIZZINESS [None]
  - DYSPNOEA [None]
  - FATIGUE [None]
  - NASOPHARYNGITIS [None]
  - NON-CARDIAC CHEST PAIN [None]
  - PAIN [None]
  - SYNCOPE [None]
